FAERS Safety Report 5685316-3 (Version None)
Quarter: 2008Q1

REPORT INFORMATION
  Report Type: 
  Country: None (occurrence: None)
  Receive Date: 20080328
  Receipt Date: 20080318
  Transmission Date: 20080703
  Serious: Yes (Hospitalization, Other)
  Sender: FDA-Public Use
  Company Number: US-PFIZER INC-2008024532

PATIENT
  Sex: Male

DRUGS (1)
  1. CELEBREX [Suspect]

REACTIONS (8)
  - ACUTE LEUKAEMIA [None]
  - ATRIOVENTRICULAR BLOCK [None]
  - CHEST EXPANSION DECREASED [None]
  - FALL [None]
  - RENAL ARTERY OCCLUSION [None]
  - SLEEP APNOEA SYNDROME [None]
  - WEIGHT DECREASED [None]
  - WEST NILE VIRAL INFECTION [None]
